FAERS Safety Report 4375903-7 (Version None)
Quarter: 2004Q2

REPORT INFORMATION
  Report Type: 
  Country: None (occurrence: None)
  Receive Date: 20040607
  Receipt Date: 20040527
  Transmission Date: 20050107
  Serious: Yes (Other)
  Sender: FDA-Public Use
  Company Number: FRWYE746307MAY04

PATIENT
  Age: 20 Year
  Sex: Female

DRUGS (4)
  1. LEVONORGESTREL AND ETHINYL ESTRADIOL [Suspect]
     Indication: CONTRACEPTION
     Dosage: 1 TABLET 1X PER 1 DAY, ORAL
     Route: 048
     Dates: start: 20040417, end: 20040429
  2. FLAGYL [Suspect]
     Indication: CROHN'S DISEASE
     Dates: start: 20040422, end: 20040429
  3. OFLOXACIN [Suspect]
     Indication: CROHN'S DISEASE
     Dates: start: 20040422, end: 20040429
  4. PENTASA [Concomitant]

REACTIONS (1)
  - CYTOLYTIC HEPATITIS [None]
